FAERS Safety Report 9540522 (Version 1)
Quarter: 2013Q2

REPORT INFORMATION
  Report Type: Spontaneous
  Country: US (occurrence: None)
  Receive Date: 20130524
  Receipt Date: 20130524
  Transmission Date: 20140414
  Serious: Yes (Other)
  Sender: FDA-Public Use
  Company Number: PHEH2013US004398

PATIENT
  Age: 47 Year
  Sex: Female

DRUGS (1)
  1. GILENYA [Suspect]
     Indication: MULTIPLE SCLEROSIS
     Route: 048
     Dates: start: 20121002

REACTIONS (6)
  - Pneumonia [None]
  - Influenza like illness [None]
  - Decreased immune responsiveness [None]
  - Condition aggravated [None]
  - Pain [None]
  - Nervousness [None]
